FAERS Safety Report 7617989-X (Version None)
Quarter: 2011Q3

REPORT INFORMATION
  Report Type: 
  Country: None (occurrence: None)
  Receive Date: 20110718
  Receipt Date: 20110709
  Transmission Date: 20111222
  Serious: Yes (Death, Hospitalization)
  Sender: FDA-Public Use
  Company Number: PHHY2011JP61797

PATIENT
  Age: 67 Year
  Sex: Male

DRUGS (1)
  1. DEFEROXAMINE MESYLATE [Suspect]
     Indication: HAEMOCHROMATOSIS
     Dosage: UNK

REACTIONS (15)
  - KIDNEY ENLARGEMENT [None]
  - PLEURAL EFFUSION [None]
  - SPLENIC INFARCTION [None]
  - LUNG NEOPLASM [None]
  - PULMONARY EMBOLISM [None]
  - ABDOMINAL PAIN [None]
  - HEPATOSPLENOMEGALY [None]
  - PULMONARY OEDEMA [None]
  - ACUTE MYELOID LEUKAEMIA [None]
  - MULTI-ORGAN FAILURE [None]
  - THROMBOSIS [None]
  - PYREXIA [None]
  - ZYGOMYCOSIS [None]
  - LEUKAEMIC INFILTRATION [None]
  - CARDIOMEGALY [None]
